FAERS Safety Report 7884447-7 (Version None)
Quarter: 2011Q4

REPORT INFORMATION
  Report Type: 
  Country: None (occurrence: None)
  Receive Date: 20111102
  Receipt Date: 20110622
  Transmission Date: 20120403
  Serious: No
  Sender: FDA-Public Use
  Company Number: US-ASTRAZENECA-2011SE38127

PATIENT
  Age: 46 Year
  Sex: Female

DRUGS (5)
  1. ENALAPRIL [Concomitant]
  2. GABAPENTIN [Concomitant]
  3. SYNTHROID [Concomitant]
  4. OXYCODONE HCL [Concomitant]
  5. VANDETANIB [Suspect]
     Indication: THYROID CANCER
     Route: 048

REACTIONS (5)
  - BACK PAIN [None]
  - FATIGUE [None]
  - DIARRHOEA [None]
  - PAIN IN EXTREMITY [None]
  - ACNE [None]
